FAERS Safety Report 7023925-X (Version None)
Quarter: 2010Q4

REPORT INFORMATION
  Report Type: 
  Country: None (occurrence: None)
  Receive Date: 20101001
  Receipt Date: 20100920
  Transmission Date: 20110411
  Serious: Yes (Death, Hospitalization, Other)
  Sender: FDA-Public Use
  Company Number: US-ELI_LILLY_AND_COMPANY-US200602002503

PATIENT
  Age: 72 Year
  Sex: Female
  Weight: 45.351 kg

DRUGS (1)
  1. ZYPREXA [Suspect]
     Indication: BIPOLAR DISORDER

REACTIONS (3)
  - ARTERIOSCLEROSIS [None]
  - CARDIO-RESPIRATORY ARREST [None]
  - CHRONIC OBSTRUCTIVE PULMONARY DISEASE [None]
